FAERS Safety Report 17604437 (Version 1)
Quarter: 2020Q1

REPORT INFORMATION
  Report Type: Spontaneous
  Country: US (occurrence: US)
  Receive Date: 20200330
  Receipt Date: 20200330
  Transmission Date: 20200409
  Serious: Yes (Hospitalization)
  Sender: FDA-Public Use
  Company Number: None

PATIENT
  Age: 71 Year
  Sex: Male
  Weight: 100 kg

DRUGS (2)
  1. PEMBROLIZUMAB (PEMBROLIZUMAB 25MG/ML INJ, SOLN, 4ML) [Suspect]
     Active Substance: PEMBROLIZUMAB
     Indication: MALIGNANT MELANOMA
     Route: 042
     Dates: start: 20171221, end: 20180517
  2. AMOXICILLIN (AMOXICILLIN 125MG TAB, CHEWABLE) [Suspect]
     Active Substance: AMOXICILLIN
     Dates: start: 20180511

REACTIONS (2)
  - Secondary adrenocortical insufficiency [None]
  - Rash [None]

NARRATIVE: CASE EVENT DATE: 20180520
